FAERS Safety Report 20984990 (Version 1)
Quarter: 2022Q2

REPORT INFORMATION
  Report Type: Spontaneous
  Country: LB (occurrence: LB)
  Receive Date: 20220621
  Receipt Date: 20220621
  Transmission Date: 20220721
  Serious: Yes (Death)
  Sender: FDA-Public Use
  Company Number: LB-NOVOPROD-920856

PATIENT
  Age: 7 Year
  Sex: Female

DRUGS (1)
  1. NOVOSEVEN [Suspect]
     Active Substance: COAGULATION FACTOR VIIA RECOMBINANT HUMAN
     Indication: Haemorrhage
     Dosage: 90 ?G/KG (1 DOSE OF NOVOSEVEN 90MCG\KG)
     Route: 065

REACTIONS (2)
  - Thrombosis [Fatal]
  - Off label use [Unknown]
